FAERS Safety Report 8571558-6 (Version None)
Quarter: 2012Q3

REPORT INFORMATION
  Report Type: 
  Country: None (occurrence: None)
  Receive Date: 20120806
  Receipt Date: 20120731
  Transmission Date: 20120928
  Serious: Yes (Other)
  Sender: FDA-Public Use
  Company Number: PHEH2012US010403

PATIENT
  Sex: Female

DRUGS (1)
  1. GILENYA [Suspect]
     Indication: MULTIPLE SCLEROSIS
     Dosage: 0.5 MG, QD
     Route: 048
     Dates: start: 20110310, end: 20120501

REACTIONS (3)
  - VISUAL IMPAIRMENT [None]
  - MULTIPLE SCLEROSIS RELAPSE [None]
  - VISUAL ACUITY REDUCED [None]
